FAERS Safety Report 14822722 (Version 2)
Quarter: 2019Q1

REPORT INFORMATION
  Report Type: Report from Study
  Country: US (occurrence: US)
  Receive Date: 20180427
  Receipt Date: 20190103
  Transmission Date: 20190417
  Serious: Yes (Hospitalization)
  Sender: FDA-Public Use
  Company Number: US-ALEXION PHARMACEUTICALS INC.-A201804787

PATIENT
  Age: 24 Year
  Sex: Male

DRUGS (24)
  1. SOLIRIS [Suspect]
     Active Substance: ECULIZUMAB
     Dosage: 900 MG, Q2W
     Route: 042
     Dates: start: 20180131
  2. FLORINEF ACETATE [Concomitant]
     Active Substance: FLUDROCORTISONE ACETATE
     Dosage: TAKE 2 TABLETS 0.1 MG, QD
     Route: 048
     Dates: end: 20180313
  3. FOLVITE [Concomitant]
     Active Substance: FOLIC ACID
     Indication: PRODUCT USED FOR UNKNOWN INDICATION
     Dosage: 1 MG, QD FOR 30 DAYS
     Route: 048
     Dates: start: 20180223, end: 20180325
  4. SYNTHROID [Concomitant]
     Active Substance: LEVOTHYROXINE SODIUM
     Indication: PRODUCT USED FOR UNKNOWN INDICATION
     Dosage: 75 ?G, EVERY MORNING
     Route: 048
  5. DELTASONE [Concomitant]
     Active Substance: PREDNISONE
     Indication: PRODUCT USED FOR UNKNOWN INDICATION
     Dosage: 10 MG, QD FOR 30 DAYS
     Route: 048
     Dates: start: 20180226, end: 20180313
  6. PEPCID [Concomitant]
     Active Substance: FAMOTIDINE
     Indication: PRODUCT USED FOR UNKNOWN INDICATION
     Dosage: 20 MG, BID FOR 30 DAYS
     Route: 048
     Dates: start: 20180222, end: 20180324
  7. CALAMINE W/ZINC [Concomitant]
     Indication: RASH
     Dosage: 8-8 %, QID AS NEEDED UP TO 30 DAYS
     Route: 061
     Dates: start: 20180222, end: 20180324
  8. CATAPRES                           /00171101/ [Concomitant]
     Active Substance: CLONIDINE
     Indication: HYPERTENSION
     Dosage: 0.1 MG, Q8H
     Route: 048
  9. FLONASE [Concomitant]
     Active Substance: FLUTICASONE PROPIONATE
     Indication: RHINITIS
     Dosage: 50 ?G, 2 SPRAYS EACH NOSTRIL PRN
     Route: 045
  10. VITAMIN D3 [Concomitant]
     Active Substance: CHOLECALCIFEROL
     Indication: PRODUCT USED FOR UNKNOWN INDICATION
     Dosage: 5000 IU, QD
     Route: 048
  11. EUCERIN                            /01160201/ [Concomitant]
     Active Substance: LANOLIN\MINERAL OIL\PETROLATUM
     Indication: PRODUCT USED FOR UNKNOWN INDICATION
     Dosage: UNK, TID FOR 30 DAYS
     Route: 061
     Dates: start: 20180222, end: 20180324
  12. SOLIRIS [Suspect]
     Active Substance: ECULIZUMAB
     Indication: PAROXYSMAL NOCTURNAL HAEMOGLOBINURIA
     Dosage: 900 MG, Q2W
     Route: 042
     Dates: start: 20160526
  13. SOLIRIS [Suspect]
     Active Substance: ECULIZUMAB
     Dosage: 900 MG, Q2W
     Route: 042
     Dates: start: 20180224
  14. FLORINEF ACETATE [Concomitant]
     Active Substance: FLUDROCORTISONE ACETATE
     Indication: PRODUCT USED FOR UNKNOWN INDICATION
     Dosage: TAKE 2 TABLETS 0.1 MG, QD FOR 30 DAYS
     Route: 048
     Dates: start: 20180223, end: 20180325
  15. NORVASC [Concomitant]
     Active Substance: AMLODIPINE BESYLATE
     Indication: PRODUCT USED FOR UNKNOWN INDICATION
     Dosage: 10 MG, QD
     Route: 048
     Dates: end: 20180323
  16. LIPITOR [Concomitant]
     Active Substance: ATORVASTATIN CALCIUM
     Indication: PRODUCT USED FOR UNKNOWN INDICATION
     Dosage: 10 MG, QHS FOR 30 DAYS
     Route: 048
     Dates: start: 20180222, end: 20180324
  17. PHOSLO [Concomitant]
     Active Substance: CALCIUM ACETATE
     Indication: PRODUCT USED FOR UNKNOWN INDICATION
     Dosage: 667 MG, TID
     Route: 048
  18. FLONASE [Concomitant]
     Active Substance: FLUTICASONE PROPIONATE
     Indication: HYPERSENSITIVITY
  19. FLEXERIL [Concomitant]
     Active Substance: CYCLOBENZAPRINE HYDROCHLORIDE
     Indication: MUSCLE SPASMS
     Dosage: 5 MG, TID FOR 30 DAYS
     Route: 048
     Dates: start: 20180227, end: 20180329
  20. TUMS                               /00193601/ [Concomitant]
     Active Substance: CALCIUM CARBONATE\MAGNESIUM CARBONATE\MAGNESIUM TRISILICATE
     Indication: DYSPEPSIA
     Dosage: 200 MG / 500 MG, 1 TABLET TID
     Route: 048
  21. KENALOG [Concomitant]
     Active Substance: TRIAMCINOLONE ACETONIDE
     Indication: PRODUCT USED FOR UNKNOWN INDICATION
     Dosage: 0.1 %, BID FOR 30 DAYS
     Route: 061
     Dates: start: 20180222, end: 20180324
  22. FLORINEF ACETATE [Concomitant]
     Active Substance: FLUDROCORTISONE ACETATE
     Dosage: TAKE 2 TABLETS 0.1 MG, QD FOR 30 DAYS
     Route: 048
     Dates: start: 20180228, end: 20180313
  23. COREG [Concomitant]
     Active Substance: CARVEDILOL
     Indication: PRODUCT USED FOR UNKNOWN INDICATION
     Dosage: 6.25 MG, BID FOR 30 DAYS
     Route: 048
     Dates: start: 20180222, end: 20180324
  24. SODIUM BICARBONATE. [Concomitant]
     Active Substance: SODIUM BICARBONATE
     Indication: PRODUCT USED FOR UNKNOWN INDICATION
     Dosage: 650 MG, BID
     Route: 048
     Dates: end: 20180328

REACTIONS (2)
  - Pneumonia [Recovered/Resolved]
  - Hypervolaemia [Recovered/Resolved]

NARRATIVE: CASE EVENT DATE: 20180224
